FAERS Safety Report 9433292 (Version 5)
Quarter: 2013Q3

REPORT INFORMATION
  Report Type: Spontaneous
  Country: TW (occurrence: TW)
  Receive Date: 20130731
  Receipt Date: 20130830
  Transmission Date: 20140515
  Serious: Yes (Life-Threatening, Hospitalization, Other)
  Sender: FDA-Public Use
  Company Number: TW-BAYER-2013-091348

PATIENT
  Age: 25 Year
  Sex: Female
  Weight: 78 kg

DRUGS (5)
  1. MAGNEVIST [Suspect]
     Indication: NUCLEAR MAGNETIC RESONANCE IMAGING
     Dosage: UNK
     Route: 042
     Dates: start: 20130624, end: 20130624
  2. MAGNEVIST [Suspect]
     Indication: NECK PAIN
  3. MAGNEVIST [Suspect]
     Indication: HYPOAESTHESIA
  4. NOVORAPID [Concomitant]
     Indication: BLOOD GLUCOSE INCREASED
     Dosage: UNK
  5. INSULIN [Concomitant]
     Indication: BLOOD GLUCOSE INCREASED

REACTIONS (18)
  - Necrotising fasciitis [Not Recovered/Not Resolved]
  - Contrast media allergy [Not Recovered/Not Resolved]
  - Rectal ulcer [Not Recovered/Not Resolved]
  - Gastrointestinal necrosis [Not Recovered/Not Resolved]
  - Rectal perforation [Not Recovered/Not Resolved]
  - Immunodeficiency [None]
  - Haematochezia [None]
  - Abdominal wall cyst [None]
  - Muscle twitching [Not Recovered/Not Resolved]
  - Dyspnoea [Not Recovered/Not Resolved]
  - Cough [Not Recovered/Not Resolved]
  - Chest pain [Not Recovered/Not Resolved]
  - Epistaxis [Not Recovered/Not Resolved]
  - Pruritus [Not Recovered/Not Resolved]
  - Pyrexia [Not Recovered/Not Resolved]
  - Blood glucose increased [None]
  - Headache [None]
  - Abdominal pain [None]
